FAERS Safety Report 18290815 (Version 1)
Quarter: 2020Q3

REPORT INFORMATION
  Report Type: Spontaneous
  Country: JP (occurrence: JP)
  Receive Date: 20200921
  Receipt Date: 20200921
  Transmission Date: 20201103
  Serious: Yes (Death, Hospitalization)
  Sender: FDA-Public Use
  Company Number: JP-EISAI MEDICAL RESEARCH-EC-2020-080850

PATIENT

DRUGS (4)
  1. DAYVIGO [Suspect]
     Active Substance: LEMBOREXANT
     Route: 048
     Dates: start: 202008
  2. DEPAKENE?R [Concomitant]
     Active Substance: VALPROATE SODIUM
     Indication: PRODUCT USED FOR UNKNOWN INDICATION
     Route: 048
  3. DORAL [Suspect]
     Active Substance: QUAZEPAM
     Indication: INSOMNIA
     Route: 048
     Dates: start: 2020
  4. DAYVIGO [Suspect]
     Active Substance: LEMBOREXANT
     Indication: INSOMNIA
     Route: 048
     Dates: start: 202007, end: 202008

REACTIONS (1)
  - Stress cardiomyopathy [Fatal]

NARRATIVE: CASE EVENT DATE: 20200916
